FAERS Safety Report 4650410-2 (Version None)
Quarter: 2005Q2

REPORT INFORMATION
  Report Type: 
  Country: None (occurrence: None)
  Receive Date: 20050429
  Receipt Date: 20050421
  Transmission Date: 20051028
  Serious: Yes (Hospitalization, Other)
  Sender: FDA-Public Use
  Company Number: HQWYE251225APR05

PATIENT
  Age: 32 Year
  Sex: Male

DRUGS (5)
  1. AMIODARONE HCL [Suspect]
     Indication: ATRIAL FIBRILLATION
     Dosage: 150 MG DOSE UNIT - TOTAL DOSE NOT SPECIFIED INTRAVENOUS
     Route: 042
     Dates: start: 19970303, end: 19970303
  2. AMIODARONE HCL [Suspect]
     Indication: ATRIAL FLUTTER
     Dosage: 150 MG DOSE UNIT - TOTAL DOSE NOT SPECIFIED INTRAVENOUS
     Route: 042
     Dates: start: 19970303, end: 19970303
  3. AMIODARONE HCL [Suspect]
     Dosage: RESTARTED AT AN UNSPECIFIED DOSE
  4. WARFARIN SODIUM [Concomitant]
  5. FUROSEMIDE [Concomitant]

REACTIONS (1)
  - BACK PAIN [None]
